FAERS Safety Report 17450016 (Version 1)
Quarter: 2020Q1

REPORT INFORMATION
  Report Type: Spontaneous
  Country: US (occurrence: US)
  Receive Date: 20200212
  Receipt Date: 20200212
  Transmission Date: 20200409
  Serious: Yes (Other)
  Sender: FDA-Public Use
  Company Number: None

PATIENT
  Age: 33 Year
  Sex: Female
  Weight: 78.75 kg

DRUGS (3)
  1. DULOXOTINE [Concomitant]
  2. SMART WOMEN^S CHOICE (CONTAINER ITSELF IS UNMARKED) [Suspect]
     Active Substance: GLYCERIN\POTASSIUM
     Indication: CONTRACEPTION
  3. SYNTHROID [Concomitant]
     Active Substance: LEVOTHYROXINE SODIUM

REACTIONS (2)
  - Urinary retention [None]
  - Burning sensation [None]

NARRATIVE: CASE EVENT DATE: 20200202
